FAERS Safety Report 4787144-X (Version None)
Quarter: 2005Q4

REPORT INFORMATION
  Report Type: 
  Country: None (occurrence: None)
  Receive Date: 20051004
  Receipt Date: 20050919
  Transmission Date: 20060501
  Serious: Yes (Hospitalization)
  Sender: FDA-Public Use
  Company Number: US-MERCK-0509USA02618

PATIENT
  Age: 69 Year
  Sex: Female
  Weight: 71 kg

DRUGS (13)
  1. VIOXX [Suspect]
     Indication: ARTHRITIS
     Route: 048
     Dates: start: 20010101, end: 20040101
  2. VIOXX [Suspect]
     Route: 048
     Dates: start: 20011102, end: 20011105
  3. ASPIRIN [Concomitant]
     Indication: HEADACHE
     Route: 065
  4. CELEBREX [Concomitant]
     Route: 065
  5. VERAPAMIL [Concomitant]
     Route: 065
  6. COUMADIN [Concomitant]
     Route: 065
  7. QUININE SULFATE [Concomitant]
     Indication: MUSCLE SPASMS
     Route: 065
  8. NITROGLYCERIN [Concomitant]
     Route: 065
  9. ATENOLOL [Concomitant]
     Route: 065
  10. HYDROCHLOROTHIAZIDE [Concomitant]
     Route: 065
  11. ULTRACET [Concomitant]
     Indication: PAIN
     Route: 065
  12. PREVACID [Concomitant]
     Route: 065
  13. TYLENOL W/ CODEINE NO. 3 [Concomitant]
     Route: 065

REACTIONS (19)
  - ANGINA UNSTABLE [None]
  - AORTIC ANEURYSM [None]
  - BLEEDING TIME PROLONGED [None]
  - BRONCHITIS [None]
  - CATARACT [None]
  - CEREBROVASCULAR ACCIDENT [None]
  - CHEST DISCOMFORT [None]
  - CHRONIC OBSTRUCTIVE PULMONARY DISEASE [None]
  - CORONARY ARTERY DISEASE [None]
  - DRUG INEFFECTIVE [None]
  - HAEMORRHOIDAL HAEMORRHAGE [None]
  - HEART INJURY [None]
  - MIGRAINE [None]
  - MYOCARDIAL INFARCTION [None]
  - PNEUMONITIS [None]
  - PRODUCTIVE COUGH [None]
  - RHINORRHOEA [None]
  - TRANSIENT ISCHAEMIC ATTACK [None]
  - VENTRICULAR EXTRASYSTOLES [None]
